FAERS Safety Report 7920006-5 (Version None)
Quarter: 2011Q4

REPORT INFORMATION
  Report Type: 
  Country: None (occurrence: None)
  Receive Date: 20111117
  Receipt Date: 20111114
  Transmission Date: 20120403
  Serious: Yes (Death, Hospitalization, Disabling)
  Sender: FDA-Public Use
  Company Number: BR-BRISTOL-MYERS SQUIBB COMPANY-15692569

PATIENT
  Age: 53 Year
  Sex: Male
  Weight: 51 kg

DRUGS (2)
  1. GEMCITABINE HYDROCHLORIDE [Suspect]
     Indication: NON-SMALL CELL LUNG CANCER
     Dosage: INTERRUPT ON 01MAR2011.NO OF INFUSIONS-3.22DEC2010-10FEB2011(51D)
     Route: 065
     Dates: start: 20101222
  2. CISPLATIN [Suspect]
     Indication: NON-SMALL CELL LUNG CANCER
     Dosage: INTERRUPT ON 01MAR2011.NO OF INFUSIONS-3,22DEC2010-03FEB2011(44D)
     Route: 065
     Dates: start: 20101222

REACTIONS (4)
  - PNEUMONIA [None]
  - SEPTIC SHOCK [None]
  - RENAL FAILURE ACUTE [None]
  - PULMONARY HAEMORRHAGE [None]
